FAERS Safety Report 22947430 (Version 2)
Quarter: 2025Q4

REPORT INFORMATION
  Report Type: Spontaneous
  Country: EU (occurrence: EU)
  Receive Date: 20230915
  Receipt Date: 20251028
  Transmission Date: 20260117
  Serious: Yes (Other)
  Sender: CELLTRION
  Company Number: EU-CELLTRION INC.-2023CZ017341

PATIENT

DRUGS (21)
  1. TRASTUZUMAB [Suspect]
     Active Substance: TRASTUZUMAB
     Indication: Breast cancer
     Dosage: 600 MG, 4 CYCLES
     Route: 058
     Dates: start: 20190806, end: 20191029
  2. TRASTUZUMAB [Suspect]
     Active Substance: TRASTUZUMAB
     Dosage: 600 MG, 4 CYCLES
     Route: 058
     Dates: start: 20191029, end: 20200728
  3. TRASTUZUMAB [Suspect]
     Active Substance: TRASTUZUMAB
     Dosage: 600 MILLIGRAM
     Route: 058
     Dates: start: 2019, end: 20191029
  4. TRASTUZUMAB [Suspect]
     Active Substance: TRASTUZUMAB
     Dosage: 600 MILLIGRAM
     Dates: end: 20200728
  5. TRASTUZUMAB [Suspect]
     Active Substance: TRASTUZUMAB
     Dosage: UNK
     Route: 058
     Dates: end: 20200728
  6. TRASTUZUMAB [Suspect]
     Active Substance: TRASTUZUMAB
     Dosage: 600 MILLIGRAM (2019)
     Route: 058
     Dates: end: 20191029
  7. DOCETAXEL [Suspect]
     Active Substance: DOCETAXEL
     Indication: Breast cancer
     Dosage: UNK
     Dates: start: 20190513, end: 20190715
  8. DOCETAXEL [Suspect]
     Active Substance: DOCETAXEL
     Dosage: FOUR CYCLES
     Dates: start: 20190806, end: 20191007
  9. EPIRUBICIN [Suspect]
     Active Substance: EPIRUBICIN
     Indication: Breast cancer
     Dosage: FOUR CYCLES  OF NEOADJUVANT CHEMOTHERAPY
     Dates: start: 20190513, end: 20190715
  10. EPIRUBICIN [Suspect]
     Active Substance: EPIRUBICIN
     Dosage: 4 CYCLES
     Dates: start: 20190806, end: 20191007
  11. CYCLOPHOSPHAMIDE [Suspect]
     Active Substance: CYCLOPHOSPHAMIDE
     Indication: Breast cancer
     Dosage: FOUR CYCLES OF NEOADJUVANT CHEMOTHERAPY
     Dates: start: 20190513, end: 20190715
  12. ANASTROZOLE [Suspect]
     Active Substance: ANASTROZOLE
     Indication: Breast cancer
     Dosage: UNK
     Dates: start: 20191127, end: 20200201
  13. ANASTROZOLE [Suspect]
     Active Substance: ANASTROZOLE
     Dosage: UNK
     Dates: start: 2019, end: 20200201
  14. ANASTROZOLE [Suspect]
     Active Substance: ANASTROZOLE
     Dosage: UNK (2019)
  15. LETROZOLE [Suspect]
     Active Substance: LETROZOLE
     Indication: Breast cancer
     Dosage: UNK
     Dates: start: 20200201
  16. NERATINIB [Suspect]
     Active Substance: NERATINIB
     Indication: Breast cancer
     Dosage: UNK
     Dates: start: 20210614, end: 20210614
  17. DOCETAXEL [Concomitant]
     Active Substance: DOCETAXEL
     Indication: Breast cancer
     Dosage: UNK
     Dates: start: 2019, end: 20190707
  18. DOCETAXEL [Concomitant]
     Active Substance: DOCETAXEL
     Dosage: UNK
     Dates: start: 2019, end: 20190707
  19. VITAMIN D3 [Concomitant]
     Active Substance: CHOLECALCIFEROL
     Indication: Osteoporosis
     Dosage: UNK
     Dates: start: 202101
  20. LOPERAMIDE [Concomitant]
     Active Substance: LOPERAMIDE
     Indication: Diarrhoea
  21. IBANDRONATE SODIUM [Concomitant]
     Active Substance: IBANDRONATE SODIUM
     Indication: Osteoporosis
     Dosage: UNK
     Route: 048
     Dates: start: 202101

REACTIONS (5)
  - Malignant neoplasm progression [Unknown]
  - Osteoporosis [Unknown]
  - Drug intolerance [Unknown]
  - Haematotoxicity [Unknown]
  - Intentional product use issue [Unknown]

NARRATIVE: CASE EVENT DATE: 20190101
